FAERS Safety Report 12181012 (Version 1)
Quarter: 2016Q1

REPORT INFORMATION
  Report Type: Report from Study
  Country: JP (occurrence: JP)
  Receive Date: 20160315
  Receipt Date: 20160315
  Transmission Date: 20160526
  Serious: No
  Sender: FDA-Public Use
  Company Number: JP-FRI-1000083250

PATIENT
  Age: 38 Year
  Sex: Male

DRUGS (4)
  1. CARIPRAZINE [Suspect]
     Active Substance: CARIPRAZINE
     Dates: start: 20140227, end: 20141119
  2. CARIPRAZINE [Suspect]
     Active Substance: CARIPRAZINE
     Dates: start: 20140130, end: 20140226
  3. CARIPRAZINE [Suspect]
     Active Substance: CARIPRAZINE
     Indication: SCHIZOPHRENIA
     Dates: start: 20131108, end: 20131220
  4. CARIPRAZINE [Suspect]
     Active Substance: CARIPRAZINE
     Dates: start: 20131221, end: 20140129

REACTIONS (1)
  - Lenticular opacities [Recovered/Resolved]

NARRATIVE: CASE EVENT DATE: 20140311
